FAERS Safety Report 13292031 (Version 1)
Quarter: 2017Q1

REPORT INFORMATION
  Report Type: Spontaneous
  Country: US (occurrence: US)
  Receive Date: 20170303
  Receipt Date: 20170303
  Transmission Date: 20170428
  Serious: Yes (Death)
  Sender: FDA-Public Use
  Company Number: US-FRESENIUS KABI-FK201701734

PATIENT
  Age: 1 Year
  Weight: 10.2 kg

DRUGS (5)
  1. NOREPINEPHRINE [Concomitant]
     Active Substance: NOREPINEPHRINE\NOREPINEPHRINE BITARTRATE
     Indication: VASOPRESSIVE THERAPY
     Route: 065
  2. HEPARIN (MANUFACTURER UNKNOWN) [Suspect]
     Active Substance: HEPARIN SODIUM
     Indication: ANTICOAGULANT THERAPY
     Route: 065
  3. VASOPRESSIN. [Concomitant]
     Active Substance: VASOPRESSIN
     Indication: VASOPRESSIVE THERAPY
     Route: 065
  4. ALBUMIN [Concomitant]
     Active Substance: ALBUMIN HUMAN
     Indication: EXTRACORPOREAL MEMBRANE OXYGENATION
     Route: 065
  5. DOPAMINE [Concomitant]
     Active Substance: DOPAMINE\DOPAMINE HYDROCHLORIDE
     Indication: VASOPRESSIVE THERAPY
     Route: 065

REACTIONS (2)
  - Brain herniation [Fatal]
  - Intraventricular haemorrhage [Fatal]
